FAERS Safety Report 6211953-3 (Version None)
Quarter: 2009Q2

REPORT INFORMATION
  Report Type: 
  Country: None (occurrence: None)
  Receive Date: 20090529
  Receipt Date: 20090519
  Transmission Date: 20091009
  Serious: Yes (Other)
  Sender: FDA-Public Use
  Company Number: SPV1-2009-00993

PATIENT
  Age: 26 Year
  Sex: Female
  Weight: 59.9 kg

DRUGS (3)
  1. LIALDA [Suspect]
     Indication: COLITIS ULCERATIVE
     Dosage: 2.4 G, 1X/DAY:QD, ORAL; 3.6, 1X/DAY:QD, ORAL
     Route: 048
     Dates: start: 20090305, end: 20090325
  2. LIALDA [Suspect]
     Indication: COLITIS ULCERATIVE
     Dosage: 2.4 G, 1X/DAY:QD, ORAL; 3.6, 1X/DAY:QD, ORAL
     Route: 048
     Dates: start: 20090326, end: 20090508
  3. CANASA (MESALAZINE) [Concomitant]

REACTIONS (1)
  - LEUKOPENIA [None]
